FAERS Safety Report 6651890-3 (Version None)
Quarter: 2010Q1

REPORT INFORMATION
  Report Type: 
  Country: None (occurrence: None)
  Receive Date: 20100325
  Receipt Date: 20100316
  Transmission Date: 20100710
  Serious: Yes (Other)
  Sender: FDA-Public Use
  Company Number: US-TEVA-228326USA

PATIENT
  Sex: Female

DRUGS (1)
  1. ESTROPIPATE TABLET 0.75MG,1.5MG,3MG [Suspect]
     Route: 048

REACTIONS (4)
  - BREAST CYST [None]
  - FALL [None]
  - SHOCK [None]
  - TREMOR [None]
